FAERS Safety Report 6121162-4 (Version None)
Quarter: 2009Q1

REPORT INFORMATION
  Report Type: 
  Country: None (occurrence: None)
  Receive Date: 20090312
  Receipt Date: 20090312
  Transmission Date: 20090719
  Serious: Yes (Other)
  Sender: FDA-Public Use
  Company Number: None

PATIENT
  Age: 75 Year
  Sex: Male
  Weight: 100 kg

DRUGS (1)
  1. AZITHROMYCIN [Suspect]
     Indication: BRONCHITIS
     Dosage: 2 THE FIRST DAY ONE BUCCAL
     Route: 002
     Dates: start: 20090309, end: 20090311

REACTIONS (2)
  - DYSURIA [None]
  - POLLAKIURIA [None]
